FAERS Safety Report 8920039 (Version 1)
Quarter: 2012Q4

REPORT INFORMATION
  Report Type: 
  Country: US (occurrence: US)
  Receive Date: 20121121
  Receipt Date: 20121121
  Transmission Date: 20130627
  Serious: No
  Sender: FDA-Public Use
  Company Number: US-BRISTOL-MYERS SQUIBB COMPANY-16533770

PATIENT
  Age: 83 Year
  Sex: Female

DRUGS (1)
  1. AVALIDE [Suspect]
     Indication: HYPERTENSION
     Dosage: 1df= 150/12.5mg . ndc: 1147923. Tablet no: 2875
     Dates: start: 2011

REACTIONS (2)
  - Dizziness [Unknown]
  - Visual impairment [Unknown]
